FAERS Safety Report 5316127-6 (Version None)
Quarter: 2007Q2

REPORT INFORMATION
  Report Type: 
  Country: None (occurrence: None)
  Receive Date: 20070503
  Receipt Date: 20070423
  Transmission Date: 20071010
  Serious: No
  Sender: FDA-Public Use
  Company Number: BR-ELI_LILLY_AND_COMPANY-BR200704005499

PATIENT
  Age: 53 Year
  Sex: Male
  Weight: 86 kg

DRUGS (1)
  1. CIALIS [Suspect]
     Indication: ERECTILE DYSFUNCTION
     Dosage: 20 MG, UNKNOWN
     Route: 048
     Dates: start: 20070422

REACTIONS (4)
  - EYELID PAIN [None]
  - HEADACHE [None]
  - NASAL CONGESTION [None]
  - OCULAR DISCOMFORT [None]
